FAERS Safety Report 7959160-8 (Version None)
Quarter: 2011Q4

REPORT INFORMATION
  Report Type: 
  Country: None (occurrence: None)
  Receive Date: 20111206
  Receipt Date: 20111128
  Transmission Date: 20120403
  Serious: Yes (Other)
  Sender: FDA-Public Use
  Company Number: CN-PFIZER INC-2011290187

PATIENT
  Age: 70 Year
  Sex: Male

DRUGS (2)
  1. SOLU-MEDROL [Suspect]
     Indication: LUNG INFECTION
     Dosage: 40 MG, UNK
     Route: 041
     Dates: start: 20051001, end: 20051001
  2. CEFTRIAXONE SODIUM/SULBACTAM SODIUM [Concomitant]
     Indication: LUNG INFECTION
     Dosage: 1.25 G, UNK
     Route: 041
     Dates: start: 20051001

REACTIONS (2)
  - MENTAL DISORDER [None]
  - RESTLESSNESS [None]
